FAERS Safety Report 10090121 (Version 2)
Quarter: 2014Q2

REPORT INFORMATION
  Report Type: Spontaneous
  Country: US (occurrence: US)
  Receive Date: 20140421
  Receipt Date: 20140528
  Transmission Date: 20141212
  Serious: No
  Sender: FDA-Public Use
  Company Number: US-PFIZER INC-2014107268

PATIENT
  Age: 32 Year
  Sex: Male

DRUGS (1)
  1. PRISTIQ [Suspect]
     Dosage: 50 MG, 1X/DAY (1 TABLET IN THE MORNING BEFORE NOON)
     Route: 048

REACTIONS (1)
  - Drug hypersensitivity [Unknown]
